FAERS Safety Report 25256014 (Version 1)
Quarter: 2025Q2

REPORT INFORMATION
  Report Type: Spontaneous
  Country: GB (occurrence: GB)
  Receive Date: 20250430
  Receipt Date: 20250430
  Transmission Date: 20250716
  Serious: Yes (Hospitalization)
  Sender: AMGEN
  Company Number: GB-AMGEN-GBRSP2025080913

PATIENT
  Sex: Male

DRUGS (1)
  1. ARANESP [Suspect]
     Active Substance: DARBEPOETIN ALFA
     Indication: Nephrogenic anaemia
     Dosage: 20 MICROGRAM/0.5ML PFS, Q2WK
     Route: 058

REACTIONS (2)
  - Sepsis [Not Recovered/Not Resolved]
  - Renal disorder [Not Recovered/Not Resolved]
